FAERS Safety Report 7976596-X (Version None)
Quarter: 2011Q4

REPORT INFORMATION
  Report Type: 
  Country: None (occurrence: None)
  Receive Date: 20111213
  Receipt Date: 20111027
  Transmission Date: 20120403
  Serious: No
  Sender: FDA-Public Use
  Company Number: US-AMGEN-USASP2011049304

PATIENT
  Sex: Male

DRUGS (2)
  1. ENBREL [Suspect]
     Indication: FIBROMYALGIA
  2. ENBREL [Suspect]
     Indication: PSORIATIC ARTHROPATHY
     Dosage: 50 MG, PRN
     Route: 058
     Dates: start: 20101019

REACTIONS (13)
  - PSORIASIS [None]
  - FIBROMYALGIA [None]
  - PSORIATIC ARTHROPATHY [None]
  - STRESS [None]
  - INFLAMMATION [None]
  - THERAPEUTIC RESPONSE DECREASED [None]
  - INAPPROPRIATE SCHEDULE OF DRUG ADMINISTRATION [None]
  - PAIN [None]
  - INJECTION SITE REACTION [None]
  - WEIGHT DECREASED [None]
  - OEDEMA PERIPHERAL [None]
  - PAIN IN EXTREMITY [None]
  - INJECTION SITE ERYTHEMA [None]
